FAERS Safety Report 5903014-5 (Version None)
Quarter: 2008Q3

REPORT INFORMATION
  Report Type: 
  Country: None (occurrence: None)
  Receive Date: 20080930
  Receipt Date: 20080904
  Transmission Date: 20090109
  Serious: Yes (Other)
  Sender: FDA-Public Use
  Company Number: CA-BAYER-200834437NA

PATIENT
  Age: 77 Year
  Sex: Male

DRUGS (2)
  1. CIPRO XR [Suspect]
     Indication: DRUG USE FOR UNKNOWN INDICATION
     Route: 048
  2. DICLOFENAC [Suspect]

REACTIONS (1)
  - RECTAL HAEMORRHAGE [None]
